FAERS Safety Report 7150541-1 (Version None)
Quarter: 2010Q4

REPORT INFORMATION
  Report Type: 
  Country: None (occurrence: None)
  Receive Date: 20101210
  Receipt Date: 20101119
  Transmission Date: 20110411
  Serious: Yes (Death, Other)
  Sender: FDA-Public Use
  Company Number: PHEH2010US03871

PATIENT

DRUGS (5)
  1. ZELNORM [Suspect]
     Indication: GASTROINTESTINAL DISORDER
  2. ASPIRIN [Concomitant]
     Dosage: 81 MG, QD
  3. LEXAPRO [Concomitant]
  4. NEXIUM [Concomitant]
  5. AVALIDE [Concomitant]

REACTIONS (10)
  - CARDIAC ARREST [None]
  - CARDIO-RESPIRATORY ARREST [None]
  - CONSTIPATION [None]
  - DEPRESSION [None]
  - DYSPNOEA [None]
  - HYPERTENSION [None]
  - LEFT VENTRICULAR HYPERTROPHY [None]
  - LETHARGY [None]
  - UNRESPONSIVE TO STIMULI [None]
  - VENTRICULAR FIBRILLATION [None]
